FAERS Safety Report 9229270 (Version 1)
Quarter: 2013Q2

REPORT INFORMATION
  Report Type: Spontaneous
  Country: US (occurrence: US)
  Receive Date: 20130412
  Receipt Date: 20130412
  Transmission Date: 20140414
  Serious: Yes (Other)
  Sender: FDA-Public Use
  Company Number: US-ASTELLAS-2012US012742

PATIENT
  Age: 45 Year
  Sex: Male

DRUGS (2)
  1. PROGRAF [Suspect]
     Indication: RENAL TRANSPLANT
     Dosage: 5 MG, BID
     Route: 048
  2. PROGRAF [Suspect]
     Indication: PANCREAS TRANSPLANT

REACTIONS (4)
  - Off label use [Unknown]
  - Renal and pancreas transplant rejection [Unknown]
  - Treatment noncompliance [Unknown]
  - Weight decreased [Unknown]
